FAERS Safety Report 5838632-6 (Version None)
Quarter: 2008Q3

REPORT INFORMATION
  Report Type: 
  Country: None (occurrence: None)
  Receive Date: 20080808
  Receipt Date: 20080708
  Transmission Date: 20090109
  Serious: No
  Sender: FDA-Public Use
  Company Number: A0735409A

PATIENT
  Sex: Female

DRUGS (2)
  1. ALTABAX [Suspect]
     Dosage: 1APP UNKNOWN
     Route: 061
  2. NEOSPORIN [Suspect]
     Dosage: 1APP UNKNOWN
     Route: 061

REACTIONS (6)
  - APPLICATION SITE PRURITUS [None]
  - APPLICATION SITE RASH [None]
  - DRUG HYPERSENSITIVITY [None]
  - DRUG INEFFECTIVE [None]
  - PAIN [None]
  - RASH PAPULAR [None]
